FAERS Safety Report 8347760-5 (Version None)
Quarter: 2012Q2

REPORT INFORMATION
  Report Type: 
  Country: None (occurrence: None)
  Receive Date: 20120509
  Receipt Date: 20120502
  Transmission Date: 20120825
  Serious: Yes (Other)
  Sender: FDA-Public Use
  Company Number: US-GLAXOSMITHKLINE-A0922890A

PATIENT
  Age: 64 Year
  Sex: Female
  Weight: 130 kg

DRUGS (15)
  1. METOPROLOL TARTRATE [Concomitant]
     Dates: start: 20080101
  2. MAGNESIUM [Concomitant]
     Dates: start: 20110307
  3. ASPIRIN [Concomitant]
     Dates: start: 20080101
  4. XANAX [Concomitant]
     Dates: start: 20080101
  5. DOCETAXEL [Suspect]
     Indication: BREAST CANCER
     Dosage: 75MGM2 EVERY 3 WEEKS
     Route: 042
     Dates: start: 20101109
  6. NEUPOGEN [Concomitant]
  7. IBUPROFEN [Concomitant]
     Dates: start: 20101117
  8. PRILOSEC [Concomitant]
     Dates: start: 20080101
  9. SIMVASTATIN [Concomitant]
     Dates: start: 20080101
  10. ZOFRAN [Concomitant]
     Dates: start: 20101122
  11. LAPATINIB [Suspect]
     Indication: BREAST CANCER
     Dosage: 750MG PER DAY
     Route: 048
     Dates: start: 20101109
  12. PROZAC [Concomitant]
     Dates: start: 20080101
  13. LISINOPRIL [Concomitant]
     Dates: start: 20080101, end: 20110217
  14. AMITRIPTYLINE HCL [Concomitant]
     Dates: start: 20110131
  15. CARBOPLATIN [Suspect]
     Indication: BREAST CANCER
     Route: 042
     Dates: start: 20101109

REACTIONS (3)
  - HYPOCALCAEMIA [None]
  - HYPOKALAEMIA [None]
  - HYPOMAGNESAEMIA [None]
